FAERS Safety Report 7804059-0 (Version None)
Quarter: 2011Q4

REPORT INFORMATION
  Report Type: 
  Country: None (occurrence: None)
  Receive Date: 20111010
  Receipt Date: 20111004
  Transmission Date: 20120403
  Serious: Yes (Death, Other)
  Sender: FDA-Public Use
  Company Number: US-AMGEN-USASP2011051331

PATIENT
  Sex: Male

DRUGS (1)
  1. NPLATE [Suspect]
     Indication: IDIOPATHIC THROMBOCYTOPENIC PURPURA
     Dates: start: 20110529, end: 20110611

REACTIONS (4)
  - RESPIRATORY FAILURE [None]
  - HYPOTENSION [None]
  - DRUG INEFFECTIVE [None]
  - HAEMORRHAGE [None]
